FAERS Safety Report 10331575 (Version 1)
Quarter: 2014Q3

REPORT INFORMATION
  Report Type: Spontaneous
  Country: US (occurrence: None)
  Receive Date: 20140721
  Receipt Date: 20140721
  Transmission Date: 20150326
  Serious: No
  Sender: FDA-Public Use
  Company Number: None

PATIENT
  Sex: Female

DRUGS (2)
  1. ATIVAN [Suspect]
     Active Substance: LORAZEPAM
  2. XANAX [Suspect]
     Active Substance: ALPRAZOLAM

REACTIONS (9)
  - Anxiety [None]
  - Feeling abnormal [None]
  - Loss of consciousness [None]
  - Mood altered [None]
  - Thinking abnormal [None]
  - Drug dispensing error [None]
  - Feeling drunk [None]
  - Fatigue [None]
  - Wrong drug administered [None]

NARRATIVE: CASE EVENT DATE: 2014
